FAERS Safety Report 7681193-X (Version None)
Quarter: 2011Q3

REPORT INFORMATION
  Report Type: 
  Country: None (occurrence: None)
  Receive Date: 20110812
  Receipt Date: 20110801
  Transmission Date: 20111222
  Serious: Yes (Other)
  Sender: FDA-Public Use
  Company Number: FR-GENENTECH-322536

PATIENT
  Age: 68 Year
  Sex: Female

DRUGS (3)
  1. AZATHIOPRINE [Concomitant]
     Indication: PRODUCT USED FOR UNKNOWN INDICATION
     Dosage: UNK
     Dates: start: 20100801
  2. RITUXIMAB [Suspect]
     Indication: ANTISYNTHETASE SYNDROME
     Dosage: UNK
     Route: 065
     Dates: start: 20091001
  3. ISONIAZID [Concomitant]
     Indication: ANTIBIOTIC PROPHYLAXIS
     Dosage: UNK

REACTIONS (1)
  - TUBERCULOSIS [None]
